FAERS Safety Report 21035098 (Version 1)
Quarter: 2022Q3

REPORT INFORMATION
  Report Type: Spontaneous
  Country: US (occurrence: None)
  Receive Date: 20220701
  Receipt Date: 20220701
  Transmission Date: 20221027
  Serious: Yes (Death)
  Sender: FDA-Public Use
  Company Number: None

PATIENT
  Age: 49 Year
  Sex: Male

DRUGS (1)
  1. TESTOSTERONE CYPIONATE [Suspect]
     Active Substance: TESTOSTERONE CYPIONATE
     Indication: Hypogonadism
     Dosage: FREQUENCY : WEEKLY;?
     Route: 030
     Dates: start: 20220329, end: 20220618

REACTIONS (1)
  - Completed suicide [None]

NARRATIVE: CASE EVENT DATE: 20220618
